FAERS Safety Report 20037797 (Version 1)
Quarter: 2021Q4

REPORT INFORMATION
  Report Type: Spontaneous
  Country: PT (occurrence: PT)
  Receive Date: 20211105
  Receipt Date: 20211105
  Transmission Date: 20220303
  Serious: Yes (Death, Other)
  Sender: FDA-Public Use
  Company Number: PT-PFM-2021-04185

PATIENT

DRUGS (2)
  1. NERLYNX [Suspect]
     Active Substance: NERATINIB
     Indication: Breast cancer metastatic
     Dosage: UNK
     Route: 065
  2. NERLYNX [Suspect]
     Active Substance: NERATINIB
     Indication: Off label use
     Dosage: UNK
     Route: 065
     Dates: start: 20210326, end: 20210628

REACTIONS (4)
  - Death [Fatal]
  - Generalised oedema [Unknown]
  - Disease progression [Unknown]
  - Off label use [Unknown]

NARRATIVE: CASE EVENT DATE: 20210409
